FAERS Safety Report 13694333 (Version 1)
Quarter: 2017Q2

REPORT INFORMATION
  Report Type: Spontaneous
  Country: US (occurrence: US)
  Receive Date: 20170627
  Receipt Date: 20170627
  Transmission Date: 20170830
  Serious: Yes (Other)
  Sender: FDA-Public Use
  Company Number: US-GALDERMA-US17004365

PATIENT
  Age: 13 Year
  Sex: Female

DRUGS (1)
  1. DOXYCYCLINE. [Suspect]
     Active Substance: DOXYCYCLINE
     Indication: PRODUCT USED FOR UNKNOWN INDICATION

REACTIONS (7)
  - Intracranial pressure increased [Recovering/Resolving]
  - Vision blurred [Recovering/Resolving]
  - Off label use [Recovered/Resolved]
  - Blindness [Recovering/Resolving]
  - Papilloedema [Recovering/Resolving]
  - Headache [Recovering/Resolving]
  - Drug administered to patient of inappropriate age [Recovered/Resolved]
